FAERS Safety Report 9800287 (Version 1)
Quarter: 2014Q1

REPORT INFORMATION
  Report Type: Report from Study
  Country: US (occurrence: US)
  Receive Date: 20140106
  Receipt Date: 20140106
  Transmission Date: 20141002
  Serious: Yes (Hospitalization)
  Sender: FDA-Public Use
  Company Number: US-PFIZER INC-2013374028

PATIENT
  Age: 20 Year
  Sex: Male

DRUGS (36)
  1. CYTARABINE [Suspect]
     Indication: ACUTE LYMPHOCYTIC LEUKAEMIA
     Dosage: 3.5 G, DAYS 1-6, 4 WEEK CYCLE
     Route: 042
     Dates: start: 20130630, end: 20130705
  2. FLUDARABINE [Suspect]
     Indication: ACUTE LYMPHOCYTIC LEUKAEMIA
     Dosage: 50 MG, DAYS 2-6, 4 WEEK CYCLE
     Route: 042
     Dates: start: 20130701, end: 20130705
  3. FILGRASTIM [Suspect]
     Indication: ACUTE LYMPHOCYTIC LEUKAEMIA
     Dosage: DAILY UNTILL ANC } 1000 FOR 3 CONSECUTIVE DAYS
     Route: 042
     Dates: start: 20130630
  4. FILGRASTIM [Suspect]
     Indication: NEUTROPHIL COUNT DECREASED
     Dosage: UNK
     Route: 058
  5. ACETAMINOPHEN ENTERAL [Concomitant]
     Indication: PLATELET COUNT DECREASED
     Dosage: UNK
     Dates: start: 20130703, end: 20130709
  6. ACETAMINOPHEN ENTERAL [Concomitant]
     Indication: PYREXIA
  7. ALBUTEROL INHALER [Concomitant]
     Indication: DYSPNOEA
     Dosage: UNK
     Route: 055
     Dates: start: 20130705, end: 20130705
  8. ALLOPURINOL ENTERAL [Concomitant]
     Indication: PROPHYLAXIS
     Dosage: UNK
     Dates: start: 20130624, end: 20130706
  9. AMPHOTERCIN B LIPOSIMAL IV [Concomitant]
     Indication: LUNG INFECTION
     Dosage: UNK
     Route: 042
     Dates: start: 20130706, end: 20130708
  10. ATENOLOL ENTERAL [Concomitant]
     Indication: HYPERTENSION
     Dosage: UNK
     Dates: start: 20130701
  11. CALCIUM CARBONATE ENTERAL [Concomitant]
     Indication: HYPOCALCAEMIA
     Dosage: UNK
     Dates: start: 20130630, end: 20130706
  12. CEFEPIME INJ [Concomitant]
     Indication: SEPSIS
     Dosage: UNK
     Dates: start: 20130703
  13. DEXAMETHASONE OPTHALMIC SOLN 0.19 [Concomitant]
     Indication: CONJUNCTIVITIS
     Dosage: UNK
     Dates: start: 20130630, end: 20130707
  14. DIPHENHYDRAMINE [Concomitant]
     Indication: NAUSEA
     Dosage: UNK
     Dates: start: 20130703, end: 20130709
  15. G-CSF INJ [Concomitant]
     Indication: NEUTROPHIL COUNT DECREASED
     Dosage: UNK
     Route: 058
     Dates: start: 20130630
  16. FLUCONAZOLE ENTERAL [Concomitant]
     Indication: ANTIFUNGAL PROPHYLAXIS
     Dosage: UNK
     Dates: start: 20130703, end: 20130706
  17. GABAPENTIN ENTERAL [Concomitant]
     Indication: NEURALGIA
     Dosage: UNK
     Dates: start: 20130628
  18. GRANISETRON HYDROCHLORIDE [Concomitant]
     Indication: NAUSEA
     Dosage: UNK
     Dates: start: 20130630, end: 20130709
  19. HEPARIN FLUSH [Concomitant]
     Dosage: UNK
     Dates: start: 20130706
  20. HYDRALAZINE [Concomitant]
     Indication: HYPERTENSION
     Dosage: UNK
     Dates: start: 20130629, end: 20130630
  21. HYDROCORTISONE [Concomitant]
     Indication: PREMEDICATION
     Dosage: UNK
     Dates: start: 20130704, end: 20130709
  22. INSULIN ASPART [Concomitant]
     Indication: HYPERGLYCAEMIA
     Dosage: UNK
     Dates: start: 20130630, end: 20130701
  23. IOHEXOL (OMNIPAQUE) ENT. [Concomitant]
     Indication: PREMEDICATION
     Dosage: UNK
     Dates: start: 20130706, end: 20130706
  24. LEVOFLOXACIN ENTERAL [Concomitant]
     Indication: ANTIBIOTIC PROPHYLAXIS
     Dosage: UNK
     Dates: start: 20130628, end: 20130703
  25. LIDOCAINE/PRILOCAINE [Concomitant]
     Indication: LOCAL ANAESTHESIA
     Dosage: UNK
     Route: 061
     Dates: start: 20130709, end: 20130709
  26. LIDOCAINE/PRILOCAINE [Concomitant]
     Indication: ANAESTHESIA PROCEDURE
  27. LORAZEPAM [Concomitant]
     Indication: NAUSEA
     Dosage: UNK
     Dates: start: 20130630, end: 20130706
  28. MAGNESIUM OXIDE ENTERAL [Concomitant]
     Indication: HYPOMAGNESAEMIA
     Dosage: UNK
     Dates: start: 20130630
  29. MAGNESIUM SULFATE [Concomitant]
     Indication: HYPOMAGNESAEMIA
     Dosage: UNK
     Dates: start: 20130630, end: 20130703
  30. NYSTATIN [Concomitant]
     Indication: MUCOSAL INFECTION
     Dosage: UNK
     Dates: start: 20130627
  31. ONDANSETRON [Concomitant]
     Indication: NAUSEA
     Dosage: UNK
     Dates: start: 20130630, end: 20130630
  32. RANITIDINE [Concomitant]
     Indication: PREMEDICATION
     Dosage: UNK
     Dates: start: 20130704, end: 20130709
  33. SEVALAMER CARBONATE ENTERAL [Concomitant]
     Indication: PROPHYLAXIS
     Dosage: UNK
     Dates: start: 20130627, end: 20130706
  34. BACTRIM ENTERAL [Concomitant]
     Indication: ANTIBIOTIC PROPHYLAXIS
     Dosage: UNK
     Dates: start: 20130628
  35. VANCOMYCIN [Concomitant]
     Indication: SEPSIS
     Dosage: 250 MG, 3X/DAY (EVERY 8 HOURS)
     Route: 042
     Dates: start: 20130704
  36. VORICONAZOLE ENTERAL [Concomitant]
     Indication: LUNG INFECTION
     Dosage: UNK
     Dates: start: 20130627

REACTIONS (2)
  - Diarrhoea [Recovered/Resolved]
  - Neutropenia [Recovered/Resolved]
